FAERS Safety Report 6346056-0 (Version None)
Quarter: 2009Q3

REPORT INFORMATION
  Report Type: 
  Country: None (occurrence: None)
  Receive Date: 20090909
  Receipt Date: 20090902
  Transmission Date: 20100115
  Serious: Yes (Hospitalization, Other)
  Sender: FDA-Public Use
  Company Number: US-ABBOTT-09P-163-0594936-00

PATIENT
  Sex: Female
  Weight: 61.29 kg

DRUGS (22)
  1. NIASPAN [Suspect]
     Indication: BLOOD TRIGLYCERIDES INCREASED
     Route: 048
     Dates: start: 20050101, end: 20060101
  2. NIASPAN [Suspect]
     Route: 048
     Dates: start: 20060101, end: 20090401
  3. NIASPAN [Suspect]
     Route: 048
     Dates: start: 20090401, end: 20090601
  4. NIASPAN [Suspect]
     Route: 048
     Dates: start: 20090701, end: 20090824
  5. BYETTA [Concomitant]
     Indication: DIABETES MELLITUS
     Route: 058
  6. LANTUS [Concomitant]
     Indication: DIABETES MELLITUS
  7. SYNTHROID [Concomitant]
     Indication: HYPOTHYROIDISM
  8. COREG [Concomitant]
     Indication: HYPERTENSION
  9. COZAAR [Concomitant]
     Indication: HYPERTENSION
     Dosage: DAILY
  10. ASPIRIN [Concomitant]
     Indication: ANTICOAGULANT THERAPY
     Dosage: DAILY AT BEDTIME
  11. CRESTOR [Concomitant]
     Indication: BLOOD CHOLESTEROL INCREASED
     Dosage: DAILY AT BEDTIME
  12. LOVAZA [Concomitant]
     Indication: MEDICAL DIET
  13. LASIX [Concomitant]
     Indication: CARDIAC FAILURE CONGESTIVE
     Dosage: DAILY
  14. POTASSIUM CHLORIDE [Concomitant]
     Indication: MINERAL SUPPLEMENTATION
     Dosage: DAILY
  15. FLOVENT [Concomitant]
     Indication: ASTHMA
  16. SINGULAIR [Concomitant]
     Indication: ASTHMA
     Dosage: DAILY AT BEDTIME
  17. SINGULAIR [Concomitant]
     Indication: SEASONAL ALLERGY
  18. VITAMIN D [Concomitant]
     Indication: OSTEOPOROSIS
  19. ASCORBIC ACID [Concomitant]
     Indication: VITAMIN SUPPLEMENTATION
  20. MULTI-VITAMIN [Concomitant]
     Indication: DRUG USE FOR UNKNOWN INDICATION
  21. CALCIUM [Concomitant]
     Indication: DRUG USE FOR UNKNOWN INDICATION
  22. PREVACID [Concomitant]
     Indication: GASTROOESOPHAGEAL REFLUX DISEASE
     Route: 048

REACTIONS (5)
  - BLOOD GLUCOSE INCREASED [None]
  - BLOOD TRIGLYCERIDES ABNORMAL [None]
  - CHEST PAIN [None]
  - DYSPNOEA [None]
  - ISCHAEMIA [None]
